FAERS Safety Report 8373926-4 (Version None)
Quarter: 2012Q2

REPORT INFORMATION
  Report Type: 
  Country: None (occurrence: None)
  Receive Date: 20120521
  Receipt Date: 20120511
  Transmission Date: 20120825
  Serious: Yes (Other)
  Sender: FDA-Public Use
  Company Number: US-ABBOTT-12P-163-0934780-00

PATIENT
  Sex: Male

DRUGS (1)
  1. HYTRIN [Suspect]
     Indication: PROSTATOMEGALY

REACTIONS (6)
  - RENAL DISORDER [None]
  - DYSURIA [None]
  - PROSTATIC OBSTRUCTION [None]
  - DRUG INEFFECTIVE [None]
  - PROSTATOMEGALY [None]
  - MICTURITION URGENCY [None]
